FAERS Safety Report 9183413 (Version 1)
Quarter: 2012Q4

REPORT INFORMATION
  Report Type: 
  Country: US (occurrence: US)
  Receive Date: 20121030
  Receipt Date: 20121030
  Transmission Date: 20130627
  Serious: Yes (Other)
  Sender: FDA-Public Use
  Company Number: PHEH2012US020961

PATIENT
  Weight: 81.63 kg

DRUGS (1)
  1. DIOVAN [Suspect]
     Dosage: 160 mg, QD

REACTIONS (1)
  - Hernia [Unknown]
